FAERS Safety Report 6733831-3 (Version None)
Quarter: 2010Q2

REPORT INFORMATION
  Report Type: 
  Country: None (occurrence: None)
  Receive Date: 20100520
  Receipt Date: 20100511
  Transmission Date: 20101027
  Serious: No
  Sender: FDA-Public Use
  Company Number: US-RB-004821-10

PATIENT
  Age: 65 Year
  Sex: Female

DRUGS (1)
  1. SUBOXONE [Suspect]
     Route: 060
     Dates: start: 20100101

REACTIONS (3)
  - HEADACHE [None]
  - INFLUENZA [None]
  - MALAISE [None]
